FAERS Safety Report 14229788 (Version 2)
Quarter: 2017Q4

REPORT INFORMATION
  Report Type: Spontaneous
  Country: US (occurrence: US)
  Receive Date: 20171128
  Receipt Date: 20171207
  Transmission Date: 20180321
  Serious: Yes (Hospitalization, Other)
  Sender: FDA-Public Use
  Company Number: US-WEST-WARD PHARMACEUTICALS CORP.-US-H14001-17-04492

PATIENT
  Age: 50 Year
  Sex: Female

DRUGS (1)
  1. HEPARIN [Suspect]
     Active Substance: HEPARIN SODIUM
     Indication: RADIATION NECROSIS
     Route: 058

REACTIONS (5)
  - Intracranial pressure increased [Recovered/Resolved]
  - Haemorrhage [Recovered/Resolved]
  - Heparin-induced thrombocytopenia [Recovered/Resolved]
  - Cerebral infarction [Unknown]
  - Cerebral venous thrombosis [Recovered/Resolved]
